FAERS Safety Report 6652711-5 (Version None)
Quarter: 2010Q1

REPORT INFORMATION
  Report Type: 
  Country: None (occurrence: None)
  Receive Date: 20100326
  Receipt Date: 20100315
  Transmission Date: 20100710
  Serious: Yes (Other)
  Sender: FDA-Public Use
  Company Number: JP-JNJFOC-20100305575

PATIENT
  Age: 57 Year
  Sex: Female

DRUGS (9)
  1. CRAVIT [Suspect]
     Indication: INFECTION
     Route: 048
  2. ROCEPHIN [Concomitant]
  3. MUCODYNE [Concomitant]
  4. CLARITH [Concomitant]
     Indication: COUGH
  5. CLARITH [Concomitant]
     Indication: DIARRHOEA
  6. CLARITH [Concomitant]
     Indication: PYREXIA
  7. MUCOSOLVAN [Concomitant]
     Indication: COUGH
  8. MUCOSOLVAN [Concomitant]
     Indication: DIARRHOEA
  9. MUCOSOLVAN [Concomitant]
     Indication: PYREXIA

REACTIONS (2)
  - INTERSTITIAL LUNG DISEASE [None]
  - RESPIRATORY FAILURE [None]
